FAERS Safety Report 12133619 (Version 1)
Quarter: 2016Q1

REPORT INFORMATION
  Report Type: Spontaneous
  Country: SE (occurrence: SE)
  Receive Date: 20160301
  Receipt Date: 20160301
  Transmission Date: 20160526
  Serious: Yes (Other)
  Sender: FDA-Public Use
  Company Number: SE-009507513-1602SWE011572

PATIENT
  Age: 15 Year
  Sex: Female

DRUGS (2)
  1. SKINOREN [Concomitant]
     Active Substance: AZELAIC ACID
  2. NEXPLANON [Suspect]
     Active Substance: ETONOGESTREL
     Dosage: UNK

REACTIONS (1)
  - Systemic lupus erythematosus [Unknown]
